FAERS Safety Report 6400777-X (Version None)
Quarter: 2009Q4

REPORT INFORMATION
  Report Type: 
  Country: None (occurrence: None)
  Receive Date: 20091014
  Receipt Date: 20091002
  Transmission Date: 20100525
  Serious: Yes (Hospitalization)
  Sender: FDA-Public Use
  Company Number: CH-WATSON-2009-08262

PATIENT
  Sex: Female

DRUGS (3)
  1. TRELSTAR MIXJECT UNKNOWN STRENGTH (WATSON LABORATORIES) [Suspect]
     Indication: BREAST CANCER
     Dosage: 37.5 MG, UNK
     Route: 030
     Dates: start: 20080520, end: 20080520
  2. TRELSTAR MIXJECT UNKNOWN STRENGTH (WATSON LABORATORIES) [Suspect]
     Dosage: 37.5 MG, UNK
     Route: 030
     Dates: start: 20070619, end: 20070815
  3. TAMOXIFEN CITRATE [Suspect]
     Indication: BREAST CANCER
     Dosage: 20 MG, DAILY
     Route: 048
     Dates: start: 20070817

REACTIONS (2)
  - DEPRESSION [None]
  - INSOMNIA [None]
